FAERS Safety Report 8524278-8 (Version None)
Quarter: 2012Q3

REPORT INFORMATION
  Report Type: 
  Country: None (occurrence: None)
  Receive Date: 20120716
  Receipt Date: 20120716
  Transmission Date: 20120928
  Serious: Yes (Hospitalization)
  Sender: FDA-Public Use
  Company Number: None

PATIENT
  Age: 19 Year
  Sex: Female
  Weight: 58.9676 kg

DRUGS (1)
  1. GABITRIL [Suspect]
     Indication: TEMPORAL LOBE EPILEPSY
     Dosage: 3 MG, TWICDE A DAY, PO
     Route: 048

REACTIONS (1)
  - HALLUCINATION, AUDITORY [None]
